FAERS Safety Report 8318253-6 (Version None)
Quarter: 2012Q1

REPORT INFORMATION
  Report Type: 
  Country: None (occurrence: None)
  Receive Date: 20120315
  Receipt Date: 20110210
  Transmission Date: 20120608
  Serious: Yes (Other)
  Sender: FDA-Public Use
  Company Number: PHHY2011US12578

PATIENT
  Age: 42 Year
  Sex: Male

DRUGS (2)
  1. STEROIDS NOS (NO INGREDIENTS/SUBSTANCES) [Suspect]
     Dosage: UNK
  2. GILENYA [Suspect]
     Dosage: 0.5 MG, QD, ORAL
     Route: 048
     Dates: start: 20110203

REACTIONS (1)
  - BLOOD PRESSURE INCREASED [None]
